FAERS Safety Report 6996587-5 (Version None)
Quarter: 2010Q3

REPORT INFORMATION
  Report Type: 
  Country: None (occurrence: None)
  Receive Date: 20100918
  Receipt Date: 20090526
  Transmission Date: 20110219
  Serious: No
  Sender: FDA-Public Use
  Company Number: US-WYE-H09489509

PATIENT
  Age: 60 Year
  Sex: Female
  Weight: 81.72 kg

DRUGS (4)
  1. EFFEXOR XR [Suspect]
     Indication: NEUROPATHY PERIPHERAL
     Route: 048
     Dates: start: 20060101, end: 20090522
  2. PROGESTIN INJ [Concomitant]
  3. TESTOSTERONE [Concomitant]
  4. ESTROGEL [Concomitant]

REACTIONS (9)
  - ARTHRALGIA [None]
  - BACK PAIN [None]
  - BURNING SENSATION [None]
  - CONSTIPATION [None]
  - DRUG WITHDRAWAL SYNDROME [None]
  - DRY EYE [None]
  - DRY MOUTH [None]
  - PAIN [None]
  - PAIN IN EXTREMITY [None]
